FAERS Safety Report 7372670-X (Version None)
Quarter: 2011Q1

REPORT INFORMATION
  Report Type: 
  Country: None (occurrence: None)
  Receive Date: 20110324
  Receipt Date: 20110301
  Transmission Date: 20110831
  Serious: Yes (Other)
  Sender: FDA-Public Use
  Company Number: US-BAYER-201031897NA

PATIENT
  Sex: Female
  Weight: 54.422 kg

DRUGS (1)
  1. OCELLA [Suspect]
     Indication: ORAL CONTRACEPTION
     Route: 065
     Dates: start: 20081201, end: 20091201

REACTIONS (2)
  - GALLBLADDER DISORDER [None]
  - CHOLELITHIASIS [None]
